FAERS Safety Report 24602196 (Version 1)
Quarter: 2024Q4

REPORT INFORMATION
  Report Type: Spontaneous
  Country: DE (occurrence: DE)
  Receive Date: 20241111
  Receipt Date: 20241111
  Transmission Date: 20250115
  Serious: No
  Sender: ROCHE
  Company Number: DE-ROCHE-10000125878

PATIENT
  Age: 48 Year
  Sex: Female

DRUGS (4)
  1. OCREVUS [Suspect]
     Active Substance: OCRELIZUMAB
     Indication: Multiple sclerosis
     Route: 058
  2. DEXAMETHASONE [Concomitant]
     Active Substance: DEXAMETHASONE
  3. DESLORATADINE [Concomitant]
     Active Substance: DESLORATADINE
  4. ACETAMINOPHEN [Concomitant]
     Active Substance: ACETAMINOPHEN

REACTIONS (6)
  - Injection site erythema [Unknown]
  - Blood pressure decreased [Unknown]
  - Palpitations [Unknown]
  - Vomiting [Unknown]
  - Nasopharyngitis [Unknown]
  - Oral herpes [Unknown]

NARRATIVE: CASE EVENT DATE: 20241024
